FAERS Safety Report 8185269-2 (Version None)
Quarter: 2012Q1

REPORT INFORMATION
  Report Type: 
  Country: None (occurrence: None)
  Receive Date: 20120305
  Receipt Date: 20120227
  Transmission Date: 20120608
  Serious: Yes (Other)
  Sender: FDA-Public Use
  Company Number: PHEH2012US004733

PATIENT
  Sex: Male

DRUGS (1)
  1. EXTAVIA [Suspect]

REACTIONS (2)
  - MEMORY IMPAIRMENT [None]
  - GENERAL PHYSICAL HEALTH DETERIORATION [None]
